FAERS Safety Report 11852103 (Version 1)
Quarter: 2015Q4

REPORT INFORMATION
  Report Type: Spontaneous
  Country: US (occurrence: US)
  Receive Date: 20151218
  Receipt Date: 20151218
  Transmission Date: 20160305
  Serious: No
  Sender: FDA-Public Use
  Company Number: US-ASTRAZENECA-2015SF26718

PATIENT
  Age: 67 Year
  Sex: Female
  Weight: 83.5 kg

DRUGS (7)
  1. IBRANCE [Suspect]
     Active Substance: PALBOCICLIB
     Indication: BREAST CANCER
     Route: 048
     Dates: start: 20150903
  2. FASLODEX [Suspect]
     Active Substance: FULVESTRANT
     Route: 030
  3. METRONIDAZOLE. [Concomitant]
     Active Substance: METRONIDAZOLE
  4. HYDROCHLORIDE [Concomitant]
     Active Substance: UNSPECIFIED INGREDIENT
     Indication: PAIN
     Dosage: 10/325 TWO TIMES A DAY
  5. CIPRO [Concomitant]
     Active Substance: CIPROFLOXACIN HYDROCHLORIDE
  6. RESTASIS [Concomitant]
     Active Substance: CYCLOSPORINE
     Indication: DRY EYE
  7. AROMASIN [Concomitant]
     Active Substance: EXEMESTANE

REACTIONS (5)
  - Pain in extremity [Unknown]
  - Pain [Unknown]
  - Decreased appetite [Unknown]
  - Clostridium difficile infection [Unknown]
  - Weight decreased [Unknown]
